FAERS Safety Report 6740852-3 (Version None)
Quarter: 2010Q2

REPORT INFORMATION
  Report Type: 
  Country: None (occurrence: None)
  Receive Date: 20100526
  Receipt Date: 20100517
  Transmission Date: 20101027
  Serious: Yes (Hospitalization)
  Sender: FDA-Public Use
  Company Number: US-BIOGENIDEC-2010BI016878

PATIENT
  Age: 45 Year
  Sex: Female

DRUGS (2)
  1. AVONEX [Suspect]
     Indication: MULTIPLE SCLEROSIS
     Route: 030
     Dates: start: 19970701
  2. AVONEX [Suspect]
     Route: 030
     Dates: start: 20081223, end: 20100215

REACTIONS (4)
  - GASTRIC INFECTION [None]
  - GASTRIC STAPLING [None]
  - OESOPHAGEAL PERFORATION [None]
  - POST PROCEDURAL COMPLICATION [None]
